FAERS Safety Report 8008411-2 (Version None)
Quarter: 2011Q4

REPORT INFORMATION
  Report Type: 
  Country: None (occurrence: None)
  Receive Date: 20111227
  Receipt Date: 20111219
  Transmission Date: 20120403
  Serious: Yes (Death)
  Sender: FDA-Public Use
  Company Number: JP-ROCHE-1023717

PATIENT
  Age: 64 Year
  Sex: Male

DRUGS (6)
  1. TICLOPIDINE HCL [Suspect]
     Indication: ACUTE CORONARY SYNDROME
  2. NIFEKALANT HYDROCHLORIDE [Concomitant]
     Route: 042
  3. DOPAMINE HCL [Concomitant]
  4. OMEPRAZOLE [Concomitant]
  5. ASPIRIN [Suspect]
     Indication: ACUTE CORONARY SYNDROME
  6. HEPARIN [Concomitant]

REACTIONS (1)
  - PULMONARY ALVEOLAR HAEMORRHAGE [None]
